FAERS Safety Report 18260016 (Version 1)
Quarter: 2020Q3

REPORT INFORMATION
  Report Type: Spontaneous
  Country: GB (occurrence: GB)
  Receive Date: 20200913
  Receipt Date: 20200913
  Transmission Date: 20201103
  Serious: Yes (Hospitalization)
  Sender: FDA-Public Use
  Company Number: GB-AMGEN-GBRSP2020144972

PATIENT
  Sex: Female

DRUGS (1)
  1. AMGEVITA [Suspect]
     Active Substance: ADALIMUMAB
     Indication: PSORIATIC ARTHROPATHY
     Dosage: 40 MILLIGRAM, Q2WK
     Route: 058
     Dates: start: 20190722

REACTIONS (1)
  - Hospitalisation [Not Recovered/Not Resolved]
